FAERS Safety Report 15952325 (Version 1)
Quarter: 2019Q1

REPORT INFORMATION
  Report Type: Report from Study
  Country: RU (occurrence: RU)
  Receive Date: 20190211
  Receipt Date: 20190211
  Transmission Date: 20190417
  Serious: Yes (Death, Hospitalization, Other)
  Sender: FDA-Public Use
  Company Number: RU-ASTRAZENECA-2019SE23869

PATIENT
  Age: 71 Year
  Sex: Female
  Weight: 90 kg

DRUGS (8)
  1. L-THYROXIN [Concomitant]
     Active Substance: LEVOTHYROXINE SODIUM
  2. BRILINTA [Suspect]
     Active Substance: TICAGRELOR
     Indication: STENT PLACEMENT
     Route: 048
     Dates: start: 201809, end: 201812
  3. MERTENIL [Concomitant]
     Active Substance: ROSUVASTATIN CALCIUM
  4. CONCOR [Concomitant]
     Active Substance: BISOPROLOL FUMARATE
  5. PHYSIOTENS [Concomitant]
     Active Substance: MOXONIDINE
  6. CARDIOMAGNYL [Concomitant]
     Active Substance: ASPIRIN\MAGNESIUM HYDROXIDE
  7. NORMODIPINE [Concomitant]
     Active Substance: AMLODIPINE BESYLATE
  8. GLUCOPHAGE [Concomitant]
     Active Substance: METFORMIN HYDROCHLORIDE

REACTIONS (5)
  - Haemoglobin decreased [Unknown]
  - Death [Fatal]
  - Melaena [Unknown]
  - Gastric haemorrhage [Unknown]
  - Off label use [Unknown]
